FAERS Safety Report 9530886 (Version 1)
Quarter: 2013Q2

REPORT INFORMATION
  Report Type: Spontaneous
  Country: US (occurrence: None)
  Receive Date: 20130418
  Receipt Date: 20130418
  Transmission Date: 20140414
  Serious: Yes (Life-Threatening, Hospitalization)
  Sender: FDA-Public Use
  Company Number: 1004USA01541

PATIENT
  Age: 52 Year
  Sex: Male
  Weight: 88.5 kg

DRUGS (1)
  1. SINGULAIR (MONTELUKAST SODIUM) TABLET [Suspect]
     Indication: HYPERSENSITIVITY
     Dates: start: 20050101, end: 20070101

REACTIONS (1)
  - Pneumonia [None]
